FAERS Safety Report 6355965-8 (Version None)
Quarter: 2009Q3

REPORT INFORMATION
  Report Type: 
  Country: None (occurrence: None)
  Receive Date: 20090914
  Receipt Date: 20090914
  Transmission Date: 20100115
  Serious: Yes (Other)
  Sender: FDA-Public Use
  Company Number: None

PATIENT
  Age: 35 Year
  Sex: Female
  Weight: 67.1324 kg

DRUGS (1)
  1. SAVELLA [Suspect]
     Indication: FIBROMYALGIA
     Dosage: 12.5MG ONCE PO
     Route: 048
     Dates: start: 20090824, end: 20090825

REACTIONS (6)
  - CHILLS [None]
  - COGNITIVE DISORDER [None]
  - GASTROINTESTINAL MOTILITY DISORDER [None]
  - MIDDLE INSOMNIA [None]
  - NAUSEA [None]
  - VOMITING [None]
